FAERS Safety Report 14078642 (Version 1)
Quarter: 2017Q4

REPORT INFORMATION
  Report Type: Spontaneous
  Country: GB (occurrence: GB)
  Receive Date: 20171012
  Receipt Date: 20171012
  Transmission Date: 20180321
  Serious: Yes (Other)
  Sender: FDA-Public Use
  Company Number: GB-TEVA-813397ACC

PATIENT
  Age: 29 Year
  Sex: Male
  Weight: 129 kg

DRUGS (5)
  1. LANSOPRAZOL [Concomitant]
     Active Substance: LANSOPRAZOLE
  2. PARACETAMOL [Concomitant]
     Active Substance: ACETAMINOPHEN
     Dates: end: 20170920
  3. VENLAFAXINE [Concomitant]
     Active Substance: VENLAFAXINE HYDROCHLORIDE
     Dates: end: 20170919
  4. CODEINE [Concomitant]
     Active Substance: CODEINE
     Dates: end: 20170920
  5. NAPROXEN. [Suspect]
     Active Substance: NAPROXEN
     Indication: BACK PAIN
     Dosage: 1000 MILLIGRAM DAILY;
     Route: 048
     Dates: start: 20170918, end: 20170921

REACTIONS (4)
  - Gait disturbance [Unknown]
  - Loss of consciousness [Unknown]
  - Dizziness [Recovering/Resolving]
  - Fear [Unknown]

NARRATIVE: CASE EVENT DATE: 20170920
